FAERS Safety Report 25766084 (Version 1)
Quarter: 2025Q3

REPORT INFORMATION
  Report Type: Spontaneous
  Country: US (occurrence: US)
  Receive Date: 20250905
  Receipt Date: 20250905
  Transmission Date: 20251020
  Serious: No
  Sender: DOMPE FARMACEUTICI
  Company Number: US-FARMAPROD-202408-2799

PATIENT
  Sex: Female

DRUGS (5)
  1. OXERVATE [Suspect]
     Active Substance: CENEGERMIN-BKBJ
     Indication: Neurotrophic keratopathy
     Route: 047
     Dates: start: 20240716
  2. OXERVATE [Suspect]
     Active Substance: CENEGERMIN-BKBJ
  3. OXERVATE [Suspect]
     Active Substance: CENEGERMIN-BKBJ
  4. ERYTHROMYCIN-BENZOYL PEROXIDE [Concomitant]
     Active Substance: BENZOYL PEROXIDE\ERYTHROMYCIN
  5. ASPIRIN [Concomitant]
     Active Substance: ASPIRIN

REACTIONS (2)
  - Eye pain [Unknown]
  - Vision blurred [Not Recovered/Not Resolved]
